FAERS Safety Report 6080888-1 (Version None)
Quarter: 2009Q1

REPORT INFORMATION
  Report Type: 
  Country: None (occurrence: None)
  Receive Date: 20090217
  Receipt Date: 20090205
  Transmission Date: 20090719
  Serious: Yes (Life-Threatening, Hospitalization)
  Sender: FDA-Public Use
  Company Number: CA-ROXANE LABORATORIES, INC.-2009-RO-00125RO

PATIENT
  Age: 40 Year
  Sex: Female

DRUGS (6)
  1. LAMOTRIGINE [Suspect]
     Indication: BIPOLAR DISORDER
     Dosage: 25MG
  2. LAMOTRIGINE [Suspect]
     Dosage: 50MG
  3. VITAMIN K [Concomitant]
  4. METRONIDAZOLE [Concomitant]
     Indication: ENCEPHALOPATHY
  5. LACTULOSE [Concomitant]
     Indication: ENCEPHALOPATHY
  6. CEFOTAXIME [Concomitant]
     Indication: EVIDENCE BASED TREATMENT

REACTIONS (3)
  - DRUG RASH WITH EOSINOPHILIA AND SYSTEMIC SYMPTOMS [None]
  - HEPATIC ENCEPHALOPATHY [None]
  - HEPATITIS FULMINANT [None]
